FAERS Safety Report 10368868 (Version 3)
Quarter: 2014Q3

REPORT INFORMATION
  Report Type: Spontaneous
  Country: US (occurrence: US)
  Receive Date: 20140807
  Receipt Date: 20140922
  Transmission Date: 20150326
  Serious: Yes (Hospitalization, Other)
  Sender: FDA-Public Use
  Company Number: US-PFIZER INC-2014216843

PATIENT
  Age: 15 Year
  Sex: Male
  Weight: 43.1 kg

DRUGS (2)
  1. CELEBREX [Suspect]
     Active Substance: CELECOXIB
     Dosage: UNK
     Dates: start: 20140526, end: 20140702
  2. VINBLASTINE [Suspect]
     Active Substance: VINBLASTINE
     Dosage: UNK, WEEKLY
     Route: 042
     Dates: start: 20140617

REACTIONS (23)
  - Dumping syndrome [Recovered/Resolved]
  - Pain [Recovered/Resolved]
  - Malnutrition [Recovered/Resolved]
  - Anaemia [Recovered/Resolved]
  - Coagulopathy [Recovered/Resolved]
  - Faeces hard [Recovered/Resolved]
  - Thrombocytosis [Recovered/Resolved]
  - Respiratory distress [Recovered/Resolved]
  - Inflammatory myofibroblastic tumour [Recovered/Resolved]
  - Helicobacter gastritis [Recovered/Resolved]
  - Prothrombin time prolonged [Recovered/Resolved]
  - Abdominal pain [Recovered/Resolved]
  - Ascites [Recovered/Resolved]
  - Hypogammaglobulinaemia [Recovered/Resolved]
  - Vitamin D deficiency [Recovered/Resolved]
  - Pyrexia [Recovered/Resolved]
  - Insomnia [Recovered/Resolved]
  - Weight decreased [Recovered/Resolved]
  - Diarrhoea [Recovered/Resolved]
  - Constipation [Recovered/Resolved]
  - Condition aggravated [Recovered/Resolved]
  - Metastases to abdominal cavity [Recovered/Resolved]
  - Immunodeficiency [Recovered/Resolved]

NARRATIVE: CASE EVENT DATE: 20140703
